FAERS Safety Report 5823088-X (Version None)
Quarter: 2008Q3

REPORT INFORMATION
  Report Type: 
  Country: None (occurrence: None)
  Receive Date: 20080725
  Receipt Date: 20070813
  Transmission Date: 20090109
  Serious: No
  Sender: FDA-Public Use
  Company Number: US-AMGEN-US231094

PATIENT
  Sex: Male
  Weight: 73.4 kg

DRUGS (13)
  1. EPOGEN [Suspect]
     Indication: DIALYSIS
  2. ALLOPURINOL [Concomitant]
     Route: 048
     Dates: start: 20030210
  3. ASPIRIN [Concomitant]
     Route: 048
     Dates: start: 20070424
  4. ATENOLOL [Concomitant]
     Route: 048
     Dates: start: 20020214
  5. AVELOX [Concomitant]
     Route: 048
     Dates: start: 20070424, end: 20070429
  6. FOSRENOL [Concomitant]
     Dates: start: 20070416
  7. HECTORAL [Concomitant]
  8. HYTRIN [Concomitant]
     Route: 048
     Dates: start: 20030313
  9. KAYEXALATE [Concomitant]
     Route: 048
     Dates: start: 20070612
  10. LIPITOR [Concomitant]
     Route: 048
     Dates: start: 20060327
  11. LISINOPRIL [Concomitant]
     Dates: start: 20030210
  12. VENOFER [Concomitant]
     Dates: end: 20070523
  13. VALPROIC ACID [Concomitant]
     Dates: start: 20030210

REACTIONS (1)
  - THERAPEUTIC RESPONSE DECREASED [None]
